FAERS Safety Report 16034408 (Version 1)
Quarter: 2019Q1

REPORT INFORMATION
  Report Type: Spontaneous
  Country: US (occurrence: US)
  Receive Date: 20190305
  Receipt Date: 20190305
  Transmission Date: 20190418
  Serious: No
  Sender: FDA-Public Use
  Company Number: US-PFIZER INC-2019082614

PATIENT
  Age: 74 Year
  Sex: Male

DRUGS (1)
  1. DEPO-TESTOSTERONE [Suspect]
     Active Substance: TESTOSTERONE CYPIONATE
     Indication: HYPOGONADISM
     Dosage: UNK [0.75 MILLILITERS, SO 150 MILLIGRAMS, BY INJECTION EVERY 2 WEEKS]
     Route: 030

REACTIONS (2)
  - Wrong technique in product usage process [Unknown]
  - Pain [Unknown]
